FAERS Safety Report 8774134 (Version 1)
Quarter: 2012Q4

REPORT INFORMATION
  Report Type: 
  Country: US (occurrence: US)
  Receive Date: 20120907
  Receipt Date: 20120907
  Transmission Date: 20130627
  Serious: No
  Sender: FDA-Public Use
  Company Number: US-ASTRAZENECA-2012SE57994

PATIENT
  Age: 64 Year
  Sex: Female
  Weight: 82.1 kg

DRUGS (3)
  1. PULMICORT FLEXHALER [Suspect]
     Indication: ASTHMA
     Dosage: 180 MCG ONE INHALATION TWO TIMES A DAY
     Route: 055
     Dates: start: 20120806
  2. PULMICORT FLEXHALER [Suspect]
     Indication: CHRONIC OBSTRUCTIVE PULMONARY DISEASE
     Dosage: 180 MCG ONE INHALATION TWO TIMES A DAY
     Route: 055
     Dates: start: 20120806
  3. NEXIUM [Suspect]
     Indication: DYSPEPSIA
     Route: 048
     Dates: start: 2008, end: 2008

REACTIONS (3)
  - Asthma [Unknown]
  - Urticaria [Unknown]
  - Drug ineffective [Unknown]
